FAERS Safety Report 6676576-0 (Version None)
Quarter: 2010Q2

REPORT INFORMATION
  Report Type: 
  Country: None (occurrence: None)
  Receive Date: 20100408
  Receipt Date: 20100330
  Transmission Date: 20101027
  Serious: Yes (Death, Hospitalization)
  Sender: FDA-Public Use
  Company Number: DSA_42577_2010

PATIENT
  Sex: Male
  Weight: 56.6996 kg

DRUGS (12)
  1. XENAZINE [Suspect]
     Indication: DYSTONIA
     Dosage: SEE IMAGE, ORAL
     Route: 048
     Dates: start: 20090101, end: 20090101
  2. XENAZINE [Suspect]
     Indication: DYSTONIA
     Dosage: SEE IMAGE, ORAL
     Route: 048
     Dates: start: 20090101, end: 20090101
  3. XENAZINE [Suspect]
     Indication: DYSTONIA
     Dosage: SEE IMAGE, ORAL
     Route: 048
     Dates: start: 20090301, end: 20090101
  4. XENAZINE [Suspect]
     Indication: DYSTONIA
     Dosage: SEE IMAGE, ORAL
     Route: 048
     Dates: start: 20090609, end: 20091117
  5. XENAZINE [Suspect]
     Indication: DYSTONIA
     Dosage: SEE IMAGE, ORAL
     Route: 048
     Dates: start: 20091117, end: 20100118
  6. XENAZINE [Suspect]
     Indication: DYSTONIA
     Dosage: SEE IMAGE, ORAL
     Route: 048
     Dates: start: 20100118
  7. DANTRIUM [Concomitant]
  8. TIZANIDINE HCL [Concomitant]
  9. DIAZEPAM [Concomitant]
  10. TRAMADOL HCL [Concomitant]
  11. BACLOFEN [Concomitant]
  12. PREVACID [Concomitant]

REACTIONS (30)
  - AREFLEXIA [None]
  - BLOOD CHLORIDE DECREASED [None]
  - BLOOD GLUCOSE INCREASED [None]
  - BLOOD POTASSIUM DECREASED [None]
  - BLOOD PRESSURE DECREASED [None]
  - BLOOD SODIUM DECREASED [None]
  - BODY TEMPERATURE INCREASED [None]
  - CARDIAC ARREST [None]
  - COMA [None]
  - CYANOSIS [None]
  - DEVICE RELATED INFECTION [None]
  - ECCHYMOSIS [None]
  - FOAMING AT MOUTH [None]
  - HAEMATOCRIT DECREASED [None]
  - HAEMOGLOBIN DECREASED [None]
  - HEART RATE INCREASED [None]
  - HYPOXIC ENCEPHALOPATHY [None]
  - IMPAIRED HEALING [None]
  - INFLAMMATION [None]
  - MUCOSAL INFLAMMATION [None]
  - PLEURAL EFFUSION [None]
  - PSEUDOMONAS INFECTION [None]
  - PUPIL FIXED [None]
  - QUADRIPARESIS [None]
  - REFUSAL OF TREATMENT BY PATIENT [None]
  - RESPIRATORY FAILURE [None]
  - SEPSIS [None]
  - STAPHYLOCOCCAL INFECTION [None]
  - TREATMENT NONCOMPLIANCE [None]
  - WOUND SECRETION [None]
